FAERS Safety Report 4367247-4 (Version None)
Quarter: 2004Q2

REPORT INFORMATION
  Report Type: 
  Country: None (occurrence: None)
  Receive Date: 20040524
  Receipt Date: 20040506
  Transmission Date: 20050107
  Serious: Yes (Death)
  Sender: FDA-Public Use
  Company Number: 1609

PATIENT
  Age: 57 Year
  Sex: Male

DRUGS (5)
  1. AVINZA [Suspect]
     Indication: PAIN
     Dates: end: 20040301
  2. DURAGESIC [Suspect]
     Dosage: 200 MCG Q1HR
  3. DIAZEPAM [Concomitant]
  4. GABAPENTIN [Concomitant]
  5. HYDROCODONE [Concomitant]

REACTIONS (2)
  - ACCIDENTAL OVERDOSE [None]
  - MEDICATION ERROR [None]
